FAERS Safety Report 7368319-2 (Version None)
Quarter: 2011Q1

REPORT INFORMATION
  Report Type: 
  Country: None (occurrence: None)
  Receive Date: 20110323
  Receipt Date: 20110316
  Transmission Date: 20110831
  Serious: No
  Sender: FDA-Public Use
  Company Number: US-PFIZER INC-2011058350

PATIENT
  Sex: Female

DRUGS (2)
  1. ADVIL LIQUI-GELS [Suspect]
     Dosage: UNK
  2. ADVIL COLD AND SINUS [Suspect]
     Dosage: UNK

REACTIONS (3)
  - TREMOR [None]
  - STRESS [None]
  - NERVOUSNESS [None]
